FAERS Safety Report 23846828 (Version 1)
Quarter: 2024Q2

REPORT INFORMATION
  Report Type: Report from Study
  Country: LT (occurrence: LT)
  Receive Date: 20240513
  Receipt Date: 20240513
  Transmission Date: 20240716
  Serious: Yes (Other)
  Sender: FDA-Public Use
  Company Number: LT-MYLANLABS-2024M1039532

PATIENT
  Age: 66 Year
  Sex: Male

DRUGS (4)
  1. SIRTURO [Suspect]
     Active Substance: BEDAQUILINE FUMARATE
     Indication: Tuberculosis
     Dosage: 200 MILLIGRAM, 3XW (THREE TIMES WEEKLY)
     Route: 048
  2. SIRTURO [Suspect]
     Active Substance: BEDAQUILINE FUMARATE
     Dosage: 400 MILLIGRAM (14  DAYS,  LATER  200  MG  THREE TIMES WEEKLY)
     Route: 048
     Dates: start: 20230511, end: 20231106
  3. PRETOMANID [Suspect]
     Active Substance: PRETOMANID
     Indication: Tuberculosis
     Dosage: 200 MILLIGRAM, QD (ONCE DAILY)
     Route: 048
     Dates: start: 20230511, end: 20231106
  4. LINEZOLID [Suspect]
     Active Substance: LINEZOLID
     Indication: Tuberculosis
     Dosage: 1200 MILLIGRAM, QD (ONCE DAILY)
     Route: 048
     Dates: start: 20230511, end: 20230922

REACTIONS (1)
  - Polyneuropathy [Recovered/Resolved with Sequelae]

NARRATIVE: CASE EVENT DATE: 20230915
